FAERS Safety Report 9174232 (Version 2)
Quarter: 2013Q2

REPORT INFORMATION
  Report Type: Spontaneous
  Country: JP (occurrence: JP)
  Receive Date: 20130320
  Receipt Date: 20130408
  Transmission Date: 20140414
  Serious: Yes (Hospitalization, Other)
  Sender: FDA-Public Use
  Company Number: PHHY2013JP020375

PATIENT
  Age: 47 Year
  Sex: Male

DRUGS (6)
  1. RITALIN [Suspect]
     Indication: NARCOLEPSY
     Dosage: 20 MG DAILY
     Route: 048
     Dates: start: 2007
  2. RITALIN [Suspect]
     Dosage: 10 MG, BID
  3. OLANZAPINE [Concomitant]
     Dosage: UNK UKN, UNK
  4. LENDORMIN [Concomitant]
     Dosage: UNK UKN, UNK
  5. GOODMIN [Concomitant]
     Dosage: UNK UKN, UNK
  6. SILECE [Concomitant]
     Dosage: UNK UKN, UNK
     Route: 048

REACTIONS (7)
  - Depression [Unknown]
  - Depressive symptom [Unknown]
  - Affective disorder [Unknown]
  - Mania [Unknown]
  - Abnormal behaviour [Unknown]
  - Insomnia [Unknown]
  - Hypokinesia [Unknown]
